FAERS Safety Report 7527790-3 (Version None)
Quarter: 2011Q2

REPORT INFORMATION
  Report Type: 
  Country: None (occurrence: None)
  Receive Date: 20110607
  Receipt Date: 20110525
  Transmission Date: 20111010
  Serious: Yes (Other)
  Sender: FDA-Public Use
  Company Number: US-ASTRAZENECA-2011SE32276

PATIENT
  Sex: Female

DRUGS (1)
  1. NEXIUM [Suspect]
     Route: 048
     Dates: start: 20030101

REACTIONS (4)
  - SKULL FRACTURE [None]
  - OSTEOPOROSIS [None]
  - SPINAL FRACTURE [None]
  - BONE DENSITY DECREASED [None]
